FAERS Safety Report 22056715 (Version 1)
Quarter: 2023Q1

REPORT INFORMATION
  Report Type: Spontaneous
  Country: CN (occurrence: CN)
  Receive Date: 20230302
  Receipt Date: 20230302
  Transmission Date: 20230417
  Serious: Yes (Hospitalization, Other)
  Sender: FDA-Public Use
  Company Number: CN-BRACCO-2023CN00809

PATIENT
  Age: 78 Year
  Sex: Female

DRUGS (1)
  1. IOPAMIDOL [Suspect]
     Active Substance: IOPAMIDOL
     Indication: Angiogram
     Dosage: 100 ML, SINGLE
     Route: 042
     Dates: start: 20230214, end: 20230214

REACTIONS (5)
  - Infusion site extravasation [Unknown]
  - Induration [Unknown]
  - Injection site swelling [Unknown]
  - Injection site mass [Unknown]
  - Skin temperature [Unknown]

NARRATIVE: CASE EVENT DATE: 20230214
